FAERS Safety Report 9188023 (Version 1)
Quarter: 2013Q1

REPORT INFORMATION
  Report Type: Spontaneous
  Country: US (occurrence: US)
  Receive Date: 20130325
  Receipt Date: 20130325
  Transmission Date: 20140127
  Serious: Yes (Hospitalization)
  Sender: FDA-Public Use
  Company Number: US-GLAXOSMITHKLINE-A1016922A

PATIENT
  Age: 45 Year
  Sex: Female

DRUGS (7)
  1. COREG [Suspect]
     Indication: PRODUCT USED FOR UNKNOWN INDICATION
     Dosage: 12.5MG TWICE PER DAY
     Route: 065
     Dates: start: 2003, end: 2013
  2. ATENOLOL [Suspect]
     Indication: HYPERTENSION
     Route: 065
     Dates: end: 2006
  3. NORVASC [Suspect]
     Indication: PRODUCT USED FOR UNKNOWN INDICATION
     Dosage: 5MG TWICE PER DAY
     Route: 065
     Dates: start: 1998
  4. PROTONIX [Suspect]
     Indication: ASTHMA
     Dosage: 40MG PER DAY
     Route: 065
  5. SYNTHROID [Suspect]
     Indication: PRODUCT USED FOR UNKNOWN INDICATION
     Dosage: .112MG UNKNOWN
     Route: 065
     Dates: start: 1995
  6. UNKNOWN MEDICATION [Suspect]
     Indication: THROMBOSIS
     Route: 065
     Dates: start: 2001
  7. ANAGRELIDE [Suspect]
     Indication: THROMBOSIS
     Route: 065

REACTIONS (5)
  - Erosive oesophagitis [Not Recovered/Not Resolved]
  - Myocardial infarction [Unknown]
  - Hypotension [Recovered/Resolved]
  - Blood disorder [Not Recovered/Not Resolved]
  - Thrombosis [Not Recovered/Not Resolved]
